FAERS Safety Report 25848664 (Version 1)
Quarter: 2025Q3

REPORT INFORMATION
  Report Type: Spontaneous
  Country: US (occurrence: None)
  Receive Date: 20250925
  Receipt Date: 20250925
  Transmission Date: 20251020
  Serious: Yes (Hospitalization)
  Sender: FDA-CTU
  Company Number: None

PATIENT
  Sex: Female

DRUGS (1)
  1. RAVICTI [Suspect]
     Active Substance: GLYCEROL PHENYLBUTYRATE
     Indication: Urea cycle disorder
     Dosage: FREQUENCY : 3 TIMES A DAY;?STRENGTH: 1.1GM/ML
     Route: 048
     Dates: start: 20170713

REACTIONS (3)
  - Catheter site infection [None]
  - Neoplasm malignant [None]
  - Drug ineffective [None]
